FAERS Safety Report 7252161-7 (Version None)
Quarter: 2011Q1

REPORT INFORMATION
  Report Type: 
  Country: None (occurrence: None)
  Receive Date: 20110129
  Receipt Date: 20100329
  Transmission Date: 20110831
  Serious: No
  Sender: FDA-Public Use
  Company Number: US-ABBOTT-10P-163-0636294-00

PATIENT
  Sex: Female
  Weight: 113.5 kg

DRUGS (3)
  1. HUMIRA [Suspect]
     Dates: start: 20080201, end: 20091101
  2. HUMIRA [Suspect]
     Indication: PSORIASIS
     Dates: start: 20080201, end: 20091101
  3. HUMIRA [Suspect]
     Dates: start: 20100201

REACTIONS (3)
  - PAIN IN EXTREMITY [None]
  - DRUG EFFECT DECREASED [None]
  - ARTHRALGIA [None]
